FAERS Safety Report 5239595-7 (Version None)
Quarter: 2007Q1

REPORT INFORMATION
  Report Type: 
  Country: None (occurrence: None)
  Receive Date: 20070212
  Receipt Date: 20070124
  Transmission Date: 20070707
  Serious: Yes (Hospitalization)
  Sender: FDA-Public Use
  Company Number: 2007AP000078

PATIENT
  Age: 30 Year
  Sex: Female

DRUGS (2)
  1. VALPROATE SODIUM [Suspect]
     Indication: SCHIZOAFFECTIVE DISORDER
     Dosage: 1000 MG; HS; PO
     Route: 048
     Dates: start: 20040101
  2. QUETIAPINE FUMARATE [Suspect]

REACTIONS (7)
  - CONSTIPATION [None]
  - DEHYDRATION [None]
  - HALLUCINATION [None]
  - MANIA [None]
  - PAIN [None]
  - POISONING [None]
  - RESTLESSNESS [None]
